FAERS Safety Report 21602425 (Version 1)
Quarter: 2022Q4

REPORT INFORMATION
  Report Type: Spontaneous
  Country: US (occurrence: US)
  Receive Date: 20221116
  Receipt Date: 20221116
  Transmission Date: 20230112
  Serious: Yes (Other)
  Sender: FDA-Public Use
  Company Number: US-MACLEODS PHARMACEUTICALS US LTD-MAC2022038266

PATIENT

DRUGS (5)
  1. CLOBETASOL [Suspect]
     Active Substance: CLOBETASOL
     Indication: Dermatitis contact
     Dosage: UNK
     Route: 061
  2. CLOBETASOL [Suspect]
     Active Substance: CLOBETASOL
     Indication: Rash
  3. MOMETASONE [Suspect]
     Active Substance: MOMETASONE
     Indication: Folliculitis
     Dosage: UNK
     Route: 061
  4. CLINDAMYCIN [Suspect]
     Active Substance: CLINDAMYCIN
     Indication: Folliculitis
     Dosage: 1 %
     Route: 061
  5. ALCLOMETASONE [Suspect]
     Active Substance: ALCLOMETASONE
     Indication: Dermatitis contact
     Dosage: UNK
     Route: 065

REACTIONS (5)
  - Klebsiella infection [Recovering/Resolving]
  - Superinfection bacterial [Recovering/Resolving]
  - Prescription drug used without a prescription [Recovered/Resolved]
  - Self-medication [Recovered/Resolved]
  - Tinea infection [Recovering/Resolving]
